FAERS Safety Report 12912815 (Version 3)
Quarter: 2016Q4

REPORT INFORMATION
  Report Type: Spontaneous
  Country: US (occurrence: US)
  Receive Date: 20161104
  Receipt Date: 20161213
  Transmission Date: 20170207
  Serious: Yes (Death, Other)
  Sender: FDA-Public Use
  Company Number: US-009507513-1504USA011795

PATIENT
  Age: 56 Year
  Sex: Male

DRUGS (4)
  1. CUBICIN [Suspect]
     Active Substance: DAPTOMYCIN
     Indication: OSTEOMYELITIS
     Dosage: 6 MG/KG, UNK
     Route: 042
  2. CUBICIN [Suspect]
     Active Substance: DAPTOMYCIN
     Dosage: 6 MG/KG, Q48H
     Route: 042
  3. CUBICIN [Suspect]
     Active Substance: DAPTOMYCIN
     Indication: STAPHYLOCOCCAL BACTERAEMIA
     Dosage: 6 MG/KG, UNK
     Route: 042
  4. CUBICIN [Suspect]
     Active Substance: DAPTOMYCIN
     Dosage: 6 MG/KG, UNK
     Route: 042

REACTIONS (14)
  - Thalamic infarction [Unknown]
  - Cardiac valve vegetation [Unknown]
  - Leukocytosis [Unknown]
  - Sepsis [Fatal]
  - Multiple organ dysfunction syndrome [Unknown]
  - Cardiac valve abscess [Unknown]
  - Systemic candida [Unknown]
  - Anaemia [Unknown]
  - Drug resistance [Unknown]
  - Endocarditis bacterial [Unknown]
  - Drug ineffective [Unknown]
  - Cerebral infarction [Unknown]
  - Mitral valve incompetence [Unknown]
  - Lung infiltration [Unknown]
